FAERS Safety Report 9776574 (Version 1)
Quarter: 2013Q4

REPORT INFORMATION
  Report Type: Spontaneous
  Country: US (occurrence: US)
  Receive Date: 20131220
  Receipt Date: 20131220
  Transmission Date: 20140711
  Serious: No
  Sender: FDA-Public Use
  Company Number: US-BIOGENIDEC-2013BI120375

PATIENT
  Sex: Female
  Weight: 93 kg

DRUGS (10)
  1. TECFIDERA [Suspect]
     Indication: MULTIPLE SCLEROSIS
     Dates: start: 201307, end: 201312
  2. AVONEX [Concomitant]
     Indication: MULTIPLE SCLEROSIS
     Route: 030
     Dates: start: 20091127
  3. AVONEX [Concomitant]
     Indication: MULTIPLE SCLEROSIS
     Route: 030
     Dates: start: 20100103, end: 20100408
  4. TYSABRI [Concomitant]
     Indication: MULTIPLE SCLEROSIS
     Route: 042
     Dates: start: 20100624, end: 20130517
  5. ALPRAZOLAM [Concomitant]
  6. ZYRTEC [Concomitant]
     Route: 048
  7. VITAMIN D3 [Concomitant]
     Route: 048
  8. LEXAPRO [Concomitant]
     Route: 048
  9. PROBIOTIC [Concomitant]
     Route: 048
  10. ACIDOPHILUS [Concomitant]
     Route: 048

REACTIONS (12)
  - Fatigue [Unknown]
  - Hypoaesthesia [Unknown]
  - Dysaesthesia [Unknown]
  - Bladder dysfunction [Unknown]
  - Vision blurred [Unknown]
  - Cervical myelopathy [Unknown]
  - Cognitive disorder [Unknown]
  - Depression [Unknown]
  - Pruritus [Unknown]
  - Diarrhoea [Unknown]
  - Rash [Unknown]
  - Multiple sclerosis relapse [Unknown]
